FAERS Safety Report 25496868 (Version 8)
Quarter: 2025Q4

REPORT INFORMATION
  Report Type: Report from Study
  Country: US (occurrence: None)
  Receive Date: 20250701
  Receipt Date: 20251029
  Transmission Date: 20260117
  Serious: Yes (Other)
  Sender: UCB
  Company Number: US-UCBSA-2025010867

PATIENT
  Age: 18 Year
  Weight: 31 kg

DRUGS (19)
  1. FINTEPLA [Suspect]
     Active Substance: FENFLURAMINE
     Indication: Lennox-Gastaut syndrome
     Dosage: 4.7 MILLILITER, 2X/DAY (BID)
  2. FINTEPLA [Suspect]
     Active Substance: FENFLURAMINE
     Dosage: 4.7 MILLILITER, 2X/DAY (BID)
  3. FINTEPLA [Suspect]
     Active Substance: FENFLURAMINE
     Dosage: 22 MILLIGRAM PER DAY
  4. FINTEPLA [Suspect]
     Active Substance: FENFLURAMINE
     Dosage: 5 MILLILITER, 2X/DAY (BID)
  5. BACLOFEN [Concomitant]
     Active Substance: BACLOFEN
     Indication: Product used for unknown indication
     Dosage: GIVE ONE TABLET BY MOUTH IN THE MORNING AND MIDDAY THEN TAKE ONE AND ONE-HALF TABLET AT BEDTIME PER GTUBE AS DIRECTED
  6. CARAFATE [Concomitant]
     Active Substance: SUCRALFATE
     Indication: Product used for unknown indication
     Dosage: 100 MILLIGRAM PER MILLILITER AS NEEDED
  7. CETIRIZINE [Concomitant]
     Active Substance: CETIRIZINE HYDROCHLORIDE
     Indication: Product used for unknown indication
     Dosage: 1 MG/ML
  8. CLOBAZAM [Concomitant]
     Active Substance: CLOBAZAM
     Indication: Product used for unknown indication
     Dosage: 2.5 MG= 1 ML QAM + 2.5 MG =1 ML MIDDAY+ 7.5 MG= 3 ML QHS
  9. DIAZEPAM [Concomitant]
     Active Substance: DIAZEPAM
     Indication: Seizure cluster
     Dosage: 5 MG/5 ML (1 MG/ML), 6 ML PGT AS NEEDED
  10. UNSPECIFIED INGREDIENT [Concomitant]
     Active Substance: UNSPECIFIED INGREDIENT
     Indication: Product used for unknown indication
     Dosage: 1 CAP G- BUTTON AFTER EACH MEAL
  11. EPIDIOLEX [Concomitant]
     Active Substance: CANNABIDIOL
     Indication: Seizure
     Dosage: 2ML TWICE DAILY VIA G TUBE. MAY GIVE ADDITIONAL 3ML AS NEEDED FOR SEIZURE PROTOCOL. MAX 1 EXTRA DOSE PER DAY
  12. FERROUS SULFATE [Concomitant]
     Active Substance: FERROUS SULFATE
     Indication: Product used for unknown indication
     Dosage: 5 MILLILITER, 3X/DAY (TID)
  13. GABAPENTIN [Concomitant]
     Active Substance: GABAPENTIN
     Indication: Product used for unknown indication
     Dosage: 250 MG/5 ML ORAL SOLUTION  MAY GIVE 3 ML OVERNIGHT IF NEEDED INSOMNIA OR BREAKTHROUGH SEIZURE, MAX DOSE OF 2X/DAY
  14. MELATONIN [Concomitant]
     Active Substance: MELATONIN
     Indication: Product used for unknown indication
     Dosage: 3 MILLIGRAM, ONCE DAILY (QD)
  15. IRON\VITAMINS [Concomitant]
     Active Substance: IRON\VITAMINS
     Indication: Product used for unknown indication
     Dosage: 800-100IU 1 TABLET GBUTTON QDAY
  16. NAYZILAM [Concomitant]
     Active Substance: MIDAZOLAM
     Indication: Product used for unknown indication
     Dosage: 5MG IN PRN SZ RESCUE, MAX 3 DOSES/DAY
  17. toothette swabs [Concomitant]
     Indication: Product used for unknown indication
     Dosage: 1 TABLET (800-1000IU) G-BUTTON QDAY  NANO VM-MULTI-VLTAMLN POWDER 2 SCOOPS, ABEUROL TREATMENT
  18. NEXIUM I.V. [Concomitant]
     Active Substance: ESOMEPRAZOLE SODIUM
     Indication: Product used for unknown indication
     Dosage: 20 MILLIGRAM
  19. ONDANSETRON HYDROCHLORIDE [Concomitant]
     Active Substance: ONDANSETRON HYDROCHLORIDE
     Indication: Product used for unknown indication
     Dosage: 5 MILLILITER, 8X/DAY

REACTIONS (6)
  - Tricuspid valve incompetence [Not Recovered/Not Resolved]
  - Aortic valve incompetence [Not Recovered/Not Resolved]
  - Respiratory disorder [Not Recovered/Not Resolved]
  - Nasopharyngitis [Not Recovered/Not Resolved]
  - Anxiety [Unknown]
  - Weight increased [Not Recovered/Not Resolved]
